FAERS Safety Report 25221438 (Version 1)
Quarter: 2025Q2

REPORT INFORMATION
  Report Type: Spontaneous
  Country: US (occurrence: US)
  Receive Date: 20250421
  Receipt Date: 20250421
  Transmission Date: 20250717
  Serious: No
  Sender: SANOFI AVENTIS
  Company Number: US-SA-2025SA108714

PATIENT
  Age: 35 Year
  Sex: Female
  Weight: 86.36 kg

DRUGS (4)
  1. DUPIXENT [Suspect]
     Active Substance: DUPILUMAB
     Indication: Chronic rhinosinusitis with nasal polyps
     Dosage: 300 MG, QOW
     Route: 058
     Dates: start: 20250401
  2. ZYRTEC [Concomitant]
     Active Substance: CETIRIZINE HYDROCHLORIDE
  3. PREDNISONE [Concomitant]
     Active Substance: PREDNISONE
  4. CEFDINIR [Concomitant]
     Active Substance: CEFDINIR

REACTIONS (7)
  - Taste disorder [Recovering/Resolving]
  - Hyposmia [Recovering/Resolving]
  - Facial pain [Recovering/Resolving]
  - Facial discomfort [Recovering/Resolving]
  - Sinus disorder [Recovering/Resolving]
  - Condition aggravated [Recovering/Resolving]
  - Ear discomfort [Recovering/Resolving]

NARRATIVE: CASE EVENT DATE: 20250408
